FAERS Safety Report 4339504-9 (Version None)
Quarter: 2004Q2

REPORT INFORMATION
  Report Type: 
  Country: None (occurrence: None)
  Receive Date: 20040412
  Receipt Date: 20040330
  Transmission Date: 20050107
  Serious: Yes (Other)
  Sender: FDA-Public Use
  Company Number: TR-JNJFOC-20040400418

PATIENT
  Age: 20 Year
  Sex: Female

DRUGS (4)
  1. INFLIXIMAB  (INFLIXIMAB, RECOMBINANT) LYOPHILIZED POWDER [Suspect]
     Indication: BEHCET'S SYNDROME
     Dosage: 5 MG/KG, 3 IN, INTRAVENOUS
     Route: 042
     Dates: start: 20010601, end: 20010801
  2. METHOTREXATE [Concomitant]
  3. COLCHICINE ( ) COLCHICINE [Concomitant]
  4. METHYLPREDNISOLONE [Concomitant]

REACTIONS (5)
  - DRUG INTOLERANCE [None]
  - ERYTHEMA NODOSUM [None]
  - PANNICULITIS [None]
  - SCLERITIS [None]
  - VISUAL ACUITY REDUCED [None]
